FAERS Safety Report 5152241-6 (Version None)
Quarter: 2006Q4

REPORT INFORMATION
  Report Type: 
  Country: None (occurrence: None)
  Receive Date: 20061114
  Receipt Date: 20061114
  Transmission Date: 20070319
  Serious: Yes (Hospitalization)
  Sender: FDA-Public Use
  Company Number: None

PATIENT
  Age: 54 Year
  Sex: Female
  Weight: 109 kg

DRUGS (1)
  1. INVANZ [Suspect]
     Indication: WOUND INFECTION

REACTIONS (4)
  - CONVULSION [None]
  - GAZE PALSY [None]
  - HEADACHE [None]
  - VISION BLURRED [None]
